FAERS Safety Report 5228743-0 (Version None)
Quarter: 2007Q1

REPORT INFORMATION
  Report Type: 
  Country: None (occurrence: None)
  Receive Date: 20070205
  Receipt Date: 20070125
  Transmission Date: 20070707
  Serious: Yes (Life-Threatening)
  Sender: FDA-Public Use
  Company Number: GB-JNJFOC-20070106520

PATIENT
  Age: 60 Year
  Sex: Female
  Weight: 54 kg

DRUGS (3)
  1. REMICADE [Suspect]
     Indication: DRUG USE FOR UNKNOWN INDICATION
     Route: 042
  2. ADALIMUMAB [Suspect]
     Indication: DRUG USE FOR UNKNOWN INDICATION
     Route: 058
  3. ETANERCEPT [Suspect]
     Indication: DRUG USE FOR UNKNOWN INDICATION
     Route: 058

REACTIONS (1)
  - ACUTE LYMPHOCYTIC LEUKAEMIA [None]
